FAERS Safety Report 15904068 (Version 6)
Quarter: 2020Q1

REPORT INFORMATION
  Report Type: Spontaneous
  Country: JP (occurrence: JP)
  Receive Date: 20190204
  Receipt Date: 20200316
  Transmission Date: 20200409
  Serious: Yes (Hospitalization, Other)
  Sender: FDA-Public Use
  Company Number: JP-BRISTOL-MYERS SQUIBB COMPANY-BMS-2018-121158

PATIENT
  Age: 79 Year
  Sex: Female
  Weight: 40.4 kg

DRUGS (6)
  1. EURODIN [ESTAZOLAM] [Concomitant]
     Indication: PRODUCT USED FOR UNKNOWN INDICATION
     Route: 048
  2. REFLEX [Concomitant]
     Active Substance: MIRTAZAPINE
     Indication: PRODUCT USED FOR UNKNOWN INDICATION
     Route: 048
  3. TOLEDOMIN [Concomitant]
     Active Substance: MILNACIPRAN HYDROCHLORIDE
     Indication: PRODUCT USED FOR UNKNOWN INDICATION
     Route: 048
  4. OPDIVO [Suspect]
     Active Substance: NIVOLUMAB
     Indication: PRODUCT USED FOR UNKNOWN INDICATION
     Dosage: UNK
     Route: 041
     Dates: start: 20190214
  5. OPDIVO [Suspect]
     Active Substance: NIVOLUMAB
     Indication: HEAD AND NECK CANCER
     Dosage: 240 MILLIGRAM
     Route: 041
     Dates: start: 20181204, end: 20190214
  6. OPDIVO [Suspect]
     Active Substance: NIVOLUMAB
     Indication: PRODUCT USED FOR UNKNOWN INDICATION
     Dosage: UNK
     Route: 041
     Dates: start: 20190129

REACTIONS (4)
  - Skin disorder [Recovering/Resolving]
  - Interstitial lung disease [Recovering/Resolving]
  - Acute generalised exanthematous pustulosis [Recovering/Resolving]
  - Acute respiratory distress syndrome [Recovering/Resolving]

NARRATIVE: CASE EVENT DATE: 20181209
